FAERS Safety Report 5270235-7 (Version None)
Quarter: 2007Q1

REPORT INFORMATION
  Report Type: 
  Country: None (occurrence: None)
  Receive Date: 20070320
  Receipt Date: 20070315
  Transmission Date: 20070707
  Serious: Yes (Hospitalization)
  Sender: FDA-Public Use
  Company Number: HQWYE273707SEP05

PATIENT
  Sex: Male
  Weight: 67 kg

DRUGS (3)
  1. GEMTUZUMAB OZOGAMICIN [Suspect]
     Dates: start: 20050808, end: 20050808
  2. ARA-C [Suspect]
     Dosage: ACTUAL DOSE 180 MG, WITH CUMULATIVE DOSE OF 1800 MG GIVEN
     Dates: start: 20050802, end: 20050811
  3. IDARUBICIN HCL [Suspect]
     Dosage: ACTUAL DOSE 21.6 MG, WITH CUMULATIVE DOSE OF 64.8 MG GIVEN
     Dates: start: 20050802, end: 20050806

REACTIONS (1)
  - INTERSTITIAL LUNG DISEASE [None]
